FAERS Safety Report 6304798-7 (Version None)
Quarter: 2009Q3

REPORT INFORMATION
  Report Type: 
  Country: None (occurrence: None)
  Receive Date: 20090811
  Receipt Date: 20090805
  Transmission Date: 20100115
  Serious: Yes (Hospitalization)
  Sender: FDA-Public Use
  Company Number: US-ABBOTT-09P-163-0589665-00

PATIENT
  Age: 44 Year
  Sex: Male

DRUGS (8)
  1. RITONAVIR [Suspect]
     Indication: HIV INFECTION
     Dates: start: 20040101
  2. TRIAMCINOLONE ACETONIDE [Interacting]
     Indication: OSTEOARTHRITIS
     Dates: start: 20081101, end: 20081101
  3. ATAZANAVIR [Concomitant]
     Indication: HIV INFECTION
     Dates: start: 20040101
  4. DIDANOSINE [Concomitant]
     Indication: HIV INFECTION
     Dates: start: 20040101
  5. TENOFOVIR [Concomitant]
     Indication: HIV INFECTION
     Dates: start: 20040101
  6. ATORVASTATIN [Concomitant]
     Indication: HYPERLIPIDAEMIA
  7. GLIMEPIRIDE [Concomitant]
     Indication: GLYCOSYLATED HAEMOGLOBIN
     Dates: start: 20080501
  8. GLIMEPIRIDE [Concomitant]

REACTIONS (2)
  - DRUG INTERACTION [None]
  - METABOLIC DISORDER [None]
